FAERS Safety Report 21092523 (Version 1)
Quarter: 2022Q3

REPORT INFORMATION
  Report Type: Spontaneous
  Country: US (occurrence: US)
  Receive Date: 20220718
  Receipt Date: 20220718
  Transmission Date: 20221027
  Serious: Yes (Other)
  Sender: FDA-Public Use
  Company Number: US-BRISTOL-MYERS SQUIBB COMPANY-2022-054484

PATIENT

DRUGS (1)
  1. KENALOG [Suspect]
     Active Substance: TRIAMCINOLONE ACETONIDE
     Indication: Psoriatic arthropathy
     Dosage: 40
     Route: 065

REACTIONS (5)
  - Psoriasis [Recovering/Resolving]
  - Adrenal neoplasm [Unknown]
  - Hypertension [Unknown]
  - Blood glucose increased [Unknown]
  - Psoriatic arthropathy [Recovering/Resolving]
